FAERS Safety Report 4490510-3 (Version None)
Quarter: 2004Q4

REPORT INFORMATION
  Report Type: 
  Country: None (occurrence: None)
  Receive Date: 20041028
  Receipt Date: 20041021
  Transmission Date: 20050328
  Serious: Yes (Other)
  Sender: FDA-Public Use
  Company Number: 2004US-00378

PATIENT
  Age: 24 Year
  Sex: Female

DRUGS (1)
  1. ISOTRETINOIN(ISOTRETINOIN) CAPSULE, 40MG [Suspect]
     Indication: ACNE CYSTIC
     Dosage: 40 MG, ORAL; SEE IMAGE
     Route: 048
     Dates: start: 20040518, end: 20040927

REACTIONS (3)
  - ABORTION INDUCED [None]
  - MEDICATION ERROR [None]
  - PREGNANCY [None]
